FAERS Safety Report 14637833 (Version 1)
Quarter: 2018Q1

REPORT INFORMATION
  Report Type: Spontaneous
  Country: US (occurrence: US)
  Receive Date: 20180314
  Receipt Date: 20180314
  Transmission Date: 20180509
  Serious: No
  Sender: FDA-Public Use
  Company Number: US-LUNDBECK-DKLU2045366

PATIENT
  Age: 88 Year
  Sex: Female

DRUGS (3)
  1. NORTHERA [Suspect]
     Active Substance: DROXIDOPA
     Indication: NEURODEGENERATIVE DISORDER
     Dosage: SCHEDULE C AND TITRATING
     Route: 048
     Dates: start: 20180307
  2. NORTHERA [Suspect]
     Active Substance: DROXIDOPA
     Indication: ORTHOSTATIC HYPOTENSION
  3. NORTHERA [Suspect]
     Active Substance: DROXIDOPA
     Indication: DIZZINESS

REACTIONS (1)
  - Fatigue [Unknown]

NARRATIVE: CASE EVENT DATE: 20180307
